FAERS Safety Report 12601521 (Version 4)
Quarter: 2017Q2

REPORT INFORMATION
  Report Type: Spontaneous
  Country: JP (occurrence: JP)
  Receive Date: 20160728
  Receipt Date: 20170615
  Transmission Date: 20170830
  Serious: Yes (Hospitalization)
  Sender: FDA-Public Use
  Company Number: PHJP2016JP020978

PATIENT
  Age: 68 Year
  Sex: Male

DRUGS (2)
  1. COSENTYX [Suspect]
     Active Substance: SECUKINUMAB
     Indication: PUSTULAR PSORIASIS
     Dosage: 150 MG, 4W
     Route: 058
     Dates: start: 20160302, end: 20160622
  2. TIGASONE [Concomitant]
     Active Substance: ACITRETIN
     Indication: PUSTULAR PSORIASIS
     Dosage: 10 MG, QD
     Route: 048
     Dates: start: 20130605

REACTIONS (1)
  - Lung squamous cell carcinoma stage I [Recovered/Resolved]

NARRATIVE: CASE EVENT DATE: 20160427
